FAERS Safety Report 12812828 (Version 1)
Quarter: 2016Q4

REPORT INFORMATION
  Report Type: Spontaneous
  Country: JP (occurrence: JP)
  Receive Date: 20161005
  Receipt Date: 20161005
  Transmission Date: 20170207
  Serious: Yes (Hospitalization, Other)
  Sender: FDA-Public Use
  Company Number: JP-009507513-1610JPN001437

PATIENT
  Age: 8 Year
  Sex: Male
  Weight: 17 kg

DRUGS (31)
  1. MANNITOL. [Concomitant]
     Active Substance: MANNITOL
     Dosage: DIVIDED DOSE FREQUENCY UNKNOWN
     Route: 051
     Dates: end: 20150817
  2. GRANISETRON [Concomitant]
     Active Substance: GRANISETRON
     Dosage: DIVIDED DOSE FREQUENCY UNKNOWN
     Route: 051
     Dates: start: 20151005, end: 20151010
  3. LEUNASE [Suspect]
     Active Substance: ASPARAGINASE
     Dosage: DIVIDED DOSE FREQUENCY UNKNOWN
     Route: 051
     Dates: start: 20150909, end: 20150909
  4. GRAN [Concomitant]
     Active Substance: FILGRASTIM
     Dosage: 150 MICROGRAM, UNK
     Route: 051
     Dates: end: 20150818
  5. CANCIDAS [Suspect]
     Active Substance: CASPOFUNGIN ACETATE
     Dosage: 50 MG, QD
     Route: 041
     Dates: start: 20150814, end: 20160814
  6. CYLOCIDE [Suspect]
     Active Substance: CYTARABINE
     Dosage: DOSE 48MG, DIVIDED DOSE FREQUENCY UNKNOWN
     Route: 051
     Dates: start: 20151005, end: 20151009
  7. METHOTREXATE. [Suspect]
     Active Substance: METHOTREXATE
     Dosage: TOTAL DAILY DOSE 12.5MG, DIVIDED DOSE FREQUENCY UNKNOWN
     Route: 028
     Dates: start: 20151022, end: 20151022
  8. PREDONINE [Concomitant]
     Active Substance: PREDNISOLONE\PREDNISOLONE ACETATE\PREDNISOLONE SODIUM SUCCINATE
     Dosage: DIVIDED DOSE FREQUENCY UNKNOWN
     Route: 051
     Dates: start: 20150831, end: 20150913
  9. ONON [Concomitant]
     Active Substance: PRANLUKAST
     Dosage: DIVIDED DOSE FREQUENCY UNKNOWN
     Route: 048
     Dates: end: 20150826
  10. CEFPIROME SULFATE [Suspect]
     Active Substance: CEFPIROME SULFATE
     Dosage: TOTAL DAILY DOSE 1500MG, DIVIDED DOSE FREQUENCY UNKNOWN
     Route: 051
     Dates: start: 20150818, end: 20150827
  11. ENDOXAN [Suspect]
     Active Substance: CYCLOPHOSPHAMIDE
     Dosage: DIVIDED DOSE FREQUENCY UNKNOWN
     Route: 051
     Dates: start: 20150928, end: 20150928
  12. LEUNASE [Suspect]
     Active Substance: ASPARAGINASE
     Dosage: DIVIDED DOSE FREQUENCY UNKNOWN
     Route: 051
     Dates: start: 20150907, end: 20150907
  13. LEUNASE [Suspect]
     Active Substance: ASPARAGINASE
     Dosage: DIVIDED DOSE FREQUENCY UNKNOWN
     Route: 051
     Dates: start: 20150911, end: 20150911
  14. CYLOCIDE [Suspect]
     Active Substance: CYTARABINE
     Dosage: DOSE 48MG, DIVIDED DOSE FREQUENCY UNKNOWN
     Route: 051
     Dates: start: 20150928, end: 20151002
  15. CYLOCIDE [Suspect]
     Active Substance: CYTARABINE
     Dosage: DOSE 48MG, DIVIDED DOSE FREQUENCY UNKNOWN
     Route: 051
     Dates: start: 20151022, end: 20151026
  16. VANCOMYCIN [Concomitant]
     Active Substance: VANCOMYCIN
     Dosage: 360-720MG/DAY(ACCORDING TO THE BLOOD DRUG CONCENTRATION.)
     Route: 051
     Dates: end: 20150814
  17. MEROPENEM. [Concomitant]
     Active Substance: MEROPENEM
     Dosage: DIVIDED DOSE FREQUENCY UNKNOWN
     Route: 051
     Dates: end: 20150817
  18. MIDAZOLAM [Concomitant]
     Active Substance: MIDAZOLAM\MIDAZOLAM HYDROCHLORIDE
     Indication: RESPIRATORY THERAPY
     Dosage: DIVIDED DOSE FREQUENCY UNKNOWN
     Route: 051
     Dates: end: 20150915
  19. LEUKERIN [Concomitant]
     Active Substance: MERCAPTOPURINE
     Dosage: DIVIDED DOSE FREQUENCY UNKNOWN
     Route: 048
     Dates: start: 20150929
  20. SOLU-CORTEF [Concomitant]
     Active Substance: HYDROCORTISONE SODIUM SUCCINATE
     Dosage: DIVIDED DOSE FREQUENCY UNKNOWN
     Route: 028
     Dates: start: 20150928, end: 20150928
  21. AMPHOTERICIN B. [Suspect]
     Active Substance: AMPHOTERICIN B
     Indication: FEBRILE NEUTROPENIA
     Dosage: DIVIDED DOSE FREQUENCY UNKNOWN
     Route: 041
     Dates: start: 20150810, end: 20150813
  22. PREDONINE [Concomitant]
     Active Substance: PREDNISOLONE\PREDNISOLONE ACETATE\PREDNISOLONE SODIUM SUCCINATE
     Dosage: DIVIDED DOSE FREQUENCY UNKNOWN
     Route: 051
     Dates: start: 20150914, end: 20150926
  23. BACTRAMIN [Concomitant]
     Active Substance: SULFAMETHOXAZOLE\TRIMETHOPRIM
     Indication: PROPHYLAXIS
     Dosage: DIVIDED DOSE FREQUENCY UNKNOWN
     Route: 048
  24. ONON [Concomitant]
     Active Substance: PRANLUKAST
     Dosage: DIVIDED DOSE FREQUENCY UNKNOWN
     Route: 048
     Dates: start: 20150930
  25. CANCIDAS [Suspect]
     Active Substance: CASPOFUNGIN ACETATE
     Indication: FEBRILE NEUTROPENIA
     Dosage: 25 MG, QD
     Route: 041
     Dates: start: 20150815, end: 20151019
  26. MICAFUNGIN SODIUM [Concomitant]
     Active Substance: MICAFUNGIN SODIUM
     Indication: FEBRILE NEUTROPENIA
     Dosage: DIVIDED DOSE FREQUENCY UNKNOWN
     Route: 041
     Dates: start: 20150801, end: 20150813
  27. METHOTREXATE. [Suspect]
     Active Substance: METHOTREXATE
     Dosage: TOTAL DAILY DOSE 12.5MG, DIVIDED DOSE FREQUENCY UNKNOWN
     Route: 028
     Dates: start: 20150928, end: 20150928
  28. ONCOVIN [Suspect]
     Active Substance: VINCRISTINE SULFATE
     Dosage: DIVIDED DOSE FREQUENCY UNKNOWN
     Route: 051
     Dates: start: 20150907, end: 20150907
  29. PINORUBIN [Suspect]
     Active Substance: PIRARUBICIN
     Dosage: DAILY DOSAGE UNKNOWN
     Route: 051
  30. GRANISETRON [Concomitant]
     Active Substance: GRANISETRON
     Indication: PROPHYLAXIS
     Dosage: DIVIDED DOSE FREQUENCY UNKNOWN
     Route: 051
     Dates: start: 20150928, end: 20151003
  31. DEPAKENE [Concomitant]
     Active Substance: VALPROIC ACID
     Dosage: DIVIDED DOSE FREQUENCY UNKNOWN
     Route: 048

REACTIONS (6)
  - Alanine aminotransferase increased [Recovered/Resolved]
  - Sepsis [Recovered/Resolved]
  - C-reactive protein increased [Recovered/Resolved]
  - White blood cell count decreased [Recovered/Resolved]
  - Neutrophil count decreased [Recovered/Resolved]
  - Gamma-glutamyltransferase increased [Not Recovered/Not Resolved]

NARRATIVE: CASE EVENT DATE: 20150801
